FAERS Safety Report 5801757-5 (Version None)
Quarter: 2008Q3

REPORT INFORMATION
  Report Type: 
  Country: None (occurrence: None)
  Receive Date: 20080707
  Receipt Date: 20080625
  Transmission Date: 20090109
  Serious: Yes (Death, Hospitalization)
  Sender: FDA-Public Use
  Company Number: FR-AVENTIS-200812409FR

PATIENT
  Age: 43 Year
  Sex: Male

DRUGS (13)
  1. TAXOTERE [Suspect]
     Route: 042
     Dates: start: 20060926, end: 20060926
  2. PROFENID [Suspect]
     Indication: DRUG USE FOR UNKNOWN INDICATION
     Route: 048
     Dates: start: 20060930, end: 20060930
  3. PREVISCAN                          /00789001/ [Suspect]
     Indication: DRUG USE FOR UNKNOWN INDICATION
     Route: 048
     Dates: start: 20060109
  4. CISPLATIN [Suspect]
     Route: 042
     Dates: start: 20060926, end: 20060928
  5. ZOPHREN                            /00955301/ [Suspect]
     Indication: DRUG USE FOR UNKNOWN INDICATION
     Route: 042
     Dates: start: 20060926
  6. SOLU-MEDROL [Suspect]
     Indication: DRUG USE FOR UNKNOWN INDICATION
     Route: 042
     Dates: start: 20060926, end: 20060928
  7. DOMPERIDONE [Suspect]
     Indication: DRUG USE FOR UNKNOWN INDICATION
     Route: 048
  8. GAVISCON [Suspect]
     Indication: DRUG USE FOR UNKNOWN INDICATION
     Route: 042
  9. IMODIUM [Suspect]
     Indication: DRUG USE FOR UNKNOWN INDICATION
     Route: 048
     Dates: start: 20060929
  10. NEXIUM [Suspect]
     Indication: DRUG USE FOR UNKNOWN INDICATION
     Route: 048
     Dates: start: 20060921
  11. AMITRIPTYLINE HYDROCHLORIDE [Suspect]
     Indication: DRUG USE FOR UNKNOWN INDICATION
     Route: 048
  12. LYSANXIA [Suspect]
     Indication: DRUG USE FOR UNKNOWN INDICATION
     Route: 048
     Dates: start: 20061001
  13. OXYCONTIN [Suspect]
     Indication: DRUG USE FOR UNKNOWN INDICATION
     Route: 048

REACTIONS (2)
  - ANAEMIA [None]
  - HAEMORRHAGE [None]
